FAERS Safety Report 6749331-0 (Version None)
Quarter: 2010Q2

REPORT INFORMATION
  Report Type: 
  Country: None (occurrence: None)
  Receive Date: 20100601
  Receipt Date: 20100528
  Transmission Date: 20101027
  Serious: Yes (Hospitalization)
  Sender: FDA-Public Use
  Company Number: FR-ROCHE-697048

PATIENT
  Sex: Male

DRUGS (5)
  1. ROCEPHIN [Suspect]
     Indication: ESCHERICHIA URINARY TRACT INFECTION
     Route: 042
     Dates: start: 20100221, end: 20100304
  2. DETICENE [Concomitant]
     Indication: CHEMOTHERAPY
     Dosage: DOSE: 400 MG/M2, FREQUENCY: TWICE. FIRST CYCLE
     Route: 042
     Dates: start: 20100211, end: 20100212
  3. DETICENE [Concomitant]
     Dosage: FREQUENCY: TWICE. SECOND CYCLE.
     Route: 042
     Dates: start: 20100311, end: 20100312
  4. DETICENE [Concomitant]
     Dosage: FREQUENCY: TWICE. THIRD CYCLE.
     Route: 042
     Dates: start: 20100412, end: 20100413
  5. DETICENE [Concomitant]
     Route: 042
     Dates: start: 20100518

REACTIONS (1)
  - PANCYTOPENIA [None]
